FAERS Safety Report 4522791-1 (Version None)
Quarter: 2004Q4

REPORT INFORMATION
  Report Type: 
  Country: None (occurrence: None)
  Receive Date: 20041207
  Receipt Date: 20041123
  Transmission Date: 20050328
  Serious: Yes (Death)
  Sender: FDA-Public Use
  Company Number: A02200403478

PATIENT
  Age: 73 Year
  Sex: Female

DRUGS (11)
  1. PLAVIX [Suspect]
     Dosage: ORAL
     Route: 048
     Dates: end: 20040926
  2. PAROXETINE HCL [Suspect]
     Indication: DEPRESSION
     Dosage: ORAL
     Route: 048
  3. SINGULAIR ^MERCK^ - (MONTELUKAST SODIUM) - TABLET [Suspect]
     Indication: BRONCHITIS CHRONIC
     Dosage: ORAL
     Route: 048
  4. SPIRONOLACTONE [Concomitant]
  5. EUPRESSYL (URAPIDIL) [Concomitant]
  6. VERAPAMIL [Concomitant]
  7. ALLOPURINOL [Concomitant]
  8. OROCAL D3 (CALCIUM CARBONATE/COLECALCIFEROL) [Concomitant]
  9. PROPOFAN (PARACETAMOL/CAFFEINE/DEXTROPROPOXYPHENE) [Concomitant]
  10. VOGALENE (METOPIMAZINE) [Concomitant]
  11. SYMBICORT (BUDESONIDE/FORMOTEROL) [Concomitant]

REACTIONS (2)
  - CEREBRAL HAEMORRHAGE [None]
  - HAEMORRHAGIC STROKE [None]
